FAERS Safety Report 10685211 (Version 1)
Quarter: 2014Q4

REPORT INFORMATION
  Report Type: Spontaneous
  Country: FR (occurrence: FR)
  Receive Date: 20141231
  Receipt Date: 20141231
  Transmission Date: 20150529
  Serious: Yes (Hospitalization)
  Sender: FDA-Public Use
  Company Number: FR-BAYER-2014-190064

PATIENT
  Age: 84 Year
  Sex: Female

DRUGS (3)
  1. GLUCOPHAGE [Suspect]
     Active Substance: METFORMIN HYDROCHLORIDE
     Dosage: 1700 MG, TID
     Route: 048
     Dates: end: 20141202
  2. AMAREL [Suspect]
     Active Substance: GLIMEPIRIDE
     Dosage: 4 MG, QD
     Route: 048
     Dates: end: 20141202
  3. GLUCOR [Suspect]
     Active Substance: ACARBOSE
     Dosage: 100 MG, TID
     Route: 048
     Dates: end: 20141202

REACTIONS (2)
  - Hypoglycaemia [Recovered/Resolved]
  - Lactic acidosis [Recovered/Resolved]

NARRATIVE: CASE EVENT DATE: 20141201
